FAERS Safety Report 13613924 (Version 1)
Quarter: 2017Q2

REPORT INFORMATION
  Report Type: Spontaneous
  Country: US (occurrence: US)
  Receive Date: 20170606
  Receipt Date: 20170606
  Transmission Date: 20170830
  Serious: No
  Sender: FDA-Public Use
  Company Number: US-TEVA-743565ACC

PATIENT
  Sex: Female

DRUGS (1)
  1. MINOXIDIL TSOL MN [Suspect]
     Active Substance: MINOXIDIL
     Dates: start: 20170216, end: 20170217

REACTIONS (7)
  - Eye irritation [Unknown]
  - Rash [None]
  - Pruritus generalised [Not Recovered/Not Resolved]
  - Head discomfort [Not Recovered/Not Resolved]
  - Musculoskeletal discomfort [Unknown]
  - Application site ulcer [None]
  - Application site pain [None]

NARRATIVE: CASE EVENT DATE: 20170217
